FAERS Safety Report 7777194-3 (Version None)
Quarter: 2011Q3

REPORT INFORMATION
  Report Type: 
  Country: None (occurrence: None)
  Receive Date: 20110926
  Receipt Date: 20110922
  Transmission Date: 20111222
  Serious: Yes (Other)
  Sender: FDA-Public Use
  Company Number: CN-PFIZER INC-2011224897

PATIENT
  Age: 31 Year
  Sex: Female

DRUGS (2)
  1. ZIPRASIDONE HCL [Suspect]
     Dosage: 80 MG, DAILY
     Route: 048
     Dates: start: 20070101
  2. ZIPRASIDONE HCL [Suspect]
     Indication: SCHIZOPHRENIA
     Dosage: UNK DOSE TO 140MG DAILY (MAXIMUM DOSE)
     Route: 048
     Dates: start: 20070701, end: 20070101

REACTIONS (4)
  - DYSPNOEA [None]
  - NASOPHARYNGITIS [None]
  - CHEST DISCOMFORT [None]
  - UPPER RESPIRATORY TRACT INFECTION [None]
